FAERS Safety Report 4312502-7 (Version None)
Quarter: 2004Q1

REPORT INFORMATION
  Report Type: 
  Country: None (occurrence: None)
  Receive Date: 20040303
  Receipt Date: 20040225
  Transmission Date: 20041129
  Serious: Yes (Other)
  Sender: FDA-Public Use
  Company Number: US-SHR-04-021711

PATIENT
  Age: 46 Year
  Sex: Male
  Weight: 86.2 kg

DRUGS (5)
  1. BETAPACE [Suspect]
     Indication: ATRIAL FIBRILLATION
     Dosage: 480 MG, 1X/DAY, ORAL
     Route: 048
     Dates: start: 20000201, end: 20000301
  2. BETAPACE AF [Suspect]
     Indication: ATRIAL FIBRILLATION
     Dosage: SEE IMAGE
     Route: 048
     Dates: start: 20000301, end: 20040210
  3. BETAPACE AF [Suspect]
     Indication: ATRIAL FIBRILLATION
     Dosage: SEE IMAGE
     Route: 048
     Dates: start: 20040210
  4. COUMADIN [Suspect]
     Indication: ATRIAL FIBRILLATION
     Dosage: AS REQ'D, ORAL
     Route: 048
  5. LIPITOR [Suspect]
     Dates: end: 20030101

REACTIONS (3)
  - AMYOTROPHIC LATERAL SCLEROSIS [None]
  - ASTHENIA [None]
  - THROMBOSIS [None]
